FAERS Safety Report 10683835 (Version 3)
Quarter: 2015Q1

REPORT INFORMATION
  Report Type: Report from Study
  Country: US (occurrence: US)
  Receive Date: 20141230
  Receipt Date: 20150116
  Transmission Date: 20150720
  Serious: Yes (Death, Hospitalization, Other)
  Sender: FDA-Public Use
  Company Number: US-GILEAD-2014-0128681

PATIENT
  Age: 48 Year
  Sex: Female
  Weight: 47.2 kg

DRUGS (21)
  1. LORATADINE. [Concomitant]
     Active Substance: LORATADINE
  2. AZTREONAM. [Concomitant]
     Active Substance: AZTREONAM
     Route: 042
  3. METHYLNALTREXONE [Concomitant]
     Active Substance: METHYLNALTREXONE
  4. VORICONAZOLE. [Concomitant]
     Active Substance: VORICONAZOLE
  5. AZTREONAM LYSINE [Suspect]
     Active Substance: AZTREONAM LYSINE
     Indication: CYSTIC FIBROSIS
     Dosage: 75 MG, TID
     Route: 055
     Dates: start: 20141027, end: 20141212
  6. SODIUM BICARBONATE. [Concomitant]
     Active Substance: SODIUM BICARBONATE
  7. ERGOCALCIFEROL. [Concomitant]
     Active Substance: ERGOCALCIFEROL
  8. SODIUM CHLORIDE. [Concomitant]
     Active Substance: SODIUM CHLORIDE
  9. INSULIN ASPART [Concomitant]
     Active Substance: INSULIN ASPART
  10. FLUTICASONE W/SALMETEROL [Concomitant]
     Active Substance: FLUTICASONE PROPIONATE\SALMETEROL XINAFOATE
  11. CHLORHEXIDINE [Concomitant]
     Active Substance: CHLORHEXIDINE
  12. HEPARIN SODIUM PORCINE [Concomitant]
     Active Substance: HEPARIN SODIUM
  13. LACTOBACILLUS [Concomitant]
     Active Substance: LACTOBACILLUS ACIDOPHILUS
  14. AZTREONAM LYSINE [Suspect]
     Active Substance: AZTREONAM LYSINE
     Indication: LUNG INFECTION PSEUDOMONAL
  15. VANCOMYCIN [Concomitant]
     Active Substance: VANCOMYCIN
  16. AMYLASE W/LIPASE/PROTEASE [Concomitant]
     Active Substance: AMYLASE\LIPASE\PROTEASE
  17. DORNASE ALFA [Concomitant]
     Active Substance: DORNASE ALFA
  18. POLYETHYLENE GLYCOL [Concomitant]
     Active Substance: POLYETHYLENE GLYCOLS
  19. AZITHROMYCIN [Concomitant]
     Active Substance: AZITHROMYCIN ANHYDROUS
  20. UBIDECARENONE W/VITAMINS NOS [Concomitant]
  21. FAMOTIDINE. [Concomitant]
     Active Substance: FAMOTIDINE

REACTIONS (5)
  - Cystic fibrosis [Unknown]
  - Hypotension [Unknown]
  - Respiratory failure [Fatal]
  - Respirovirus test positive [Unknown]
  - Infective pulmonary exacerbation of cystic fibrosis [Unknown]
